FAERS Safety Report 9759551 (Version 2)
Quarter: 2015Q3

REPORT INFORMATION
  Report Type: Spontaneous
  Country: US (occurrence: US)
  Receive Date: 20131216
  Receipt Date: 20150805
  Transmission Date: 20151125
  Serious: No
  Sender: FDA-Public Use
  Company Number: US-GILEAD-2010-0028045

PATIENT
  Age: 53 Year
  Sex: Female
  Weight: 99.34 kg

DRUGS (22)
  1. NOVOLOG [Concomitant]
     Active Substance: INSULIN ASPART
  2. IPRATROPIUM [Concomitant]
     Active Substance: IPRATROPIUM
  3. LEVOTHYROXINE. [Concomitant]
     Active Substance: LEVOTHYROXINE
  4. AMLODIPINE [Concomitant]
     Active Substance: AMLODIPINE BESYLATE
  5. ATROVENT [Concomitant]
     Active Substance: IPRATROPIUM BROMIDE
  6. OMEPRAZOLE. [Concomitant]
     Active Substance: OMEPRAZOLE
  7. LETAIRIS [Suspect]
     Active Substance: AMBRISENTAN
     Indication: PULMONARY ARTERIAL HYPERTENSION
     Route: 048
     Dates: start: 20091221
  8. PROAIR HFA [Concomitant]
     Active Substance: ALBUTEROL SULFATE
  9. CARVEDILOL. [Concomitant]
     Active Substance: CARVEDILOL
  10. ACARBOSE. [Concomitant]
     Active Substance: ACARBOSE
  11. CRESTOR [Concomitant]
     Active Substance: ROSUVASTATIN CALCIUM
  12. ADVAIR HFA [Concomitant]
     Active Substance: FLUTICASONE PROPIONATE\SALMETEROL XINAFOATE
  13. LORATADINE. [Concomitant]
     Active Substance: LORATADINE
  14. CLOTRIMAZOLE-3 CR [Concomitant]
  15. ASPIRIN. [Concomitant]
     Active Substance: ASPIRIN
  16. LANTUS [Concomitant]
     Active Substance: INSULIN GLARGINE
  17. BUPROPION ER [Concomitant]
     Active Substance: BUPROPION
  18. A-Z MULTIVITAMIN [Concomitant]
  19. GLIPIZIDE. [Concomitant]
     Active Substance: GLIPIZIDE
  20. AMITRIPTYLINE [Concomitant]
     Active Substance: AMITRIPTYLINE
  21. COLCHICINE. [Concomitant]
     Active Substance: COLCHICINE
  22. OXYCODONE [Concomitant]
     Active Substance: OXYCODONE

REACTIONS (1)
  - Haemoptysis [Unknown]
